FAERS Safety Report 13228906 (Version 3)
Quarter: 2017Q1

REPORT INFORMATION
  Report Type: Report from Study
  Country: None (occurrence: US)
  Receive Date: 20170213
  Receipt Date: 20170330
  Transmission Date: 20170428
  Serious: Yes (Hospitalization, Other)
  Sender: FDA-Public Use
  Company Number: US-ABBVIE-17K-163-1868023-00

PATIENT
  Age: 62 Year
  Sex: Female
  Weight: 63.56 kg

DRUGS (4)
  1. PROZAC [Concomitant]
     Active Substance: FLUOXETINE HYDROCHLORIDE
     Indication: DEPRESSION
  2. HUMIRA [Suspect]
     Active Substance: ADALIMUMAB
     Route: 058
     Dates: start: 20160609, end: 201701
  3. VALIUM [Concomitant]
     Active Substance: DIAZEPAM
     Indication: NECK PAIN
  4. HUMIRA [Suspect]
     Active Substance: ADALIMUMAB
     Indication: CROHN^S DISEASE
     Route: 058
     Dates: start: 201512, end: 201606

REACTIONS (16)
  - Dehydration [Recovered/Resolved]
  - Weight decreased [Recovering/Resolving]
  - White blood cell count increased [Recovered/Resolved]
  - Diarrhoea [Recovering/Resolving]
  - Abdominal distension [Not Recovered/Not Resolved]
  - Staphylococcus test positive [Not Recovered/Not Resolved]
  - Colonic fistula [Unknown]
  - Hypotension [Recovered/Resolved]
  - Abdominal discomfort [Not Recovered/Not Resolved]
  - Blood iron decreased [Not Recovered/Not Resolved]
  - Drug ineffective [Unknown]
  - Rectal discharge [Not Recovered/Not Resolved]
  - Renal failure [Recovered/Resolved]
  - Impaired healing [Unknown]
  - Clostridium difficile infection [Recovered/Resolved]
  - Rectal haemorrhage [Not Recovered/Not Resolved]

NARRATIVE: CASE EVENT DATE: 201512
